FAERS Safety Report 9350460 (Version 1)
Quarter: 2013Q2

REPORT INFORMATION
  Report Type: Spontaneous
  Country: US (occurrence: None)
  Receive Date: 20130613
  Receipt Date: 20130613
  Transmission Date: 20140414
  Serious: No
  Sender: FDA-Public Use
  Company Number: None

PATIENT
  Sex: Female

DRUGS (1)
  1. AFINITOR [Suspect]
     Indication: BREAST CANCER
     Dosage: 10MG DAILY PO
     Route: 048
     Dates: start: 20130325, end: 20130611

REACTIONS (2)
  - Bone marrow disorder [None]
  - Blood count abnormal [None]
